FAERS Safety Report 18587528 (Version 1)
Quarter: 2020Q4

REPORT INFORMATION
  Report Type: Spontaneous
  Country: US (occurrence: US)
  Receive Date: 20201207
  Receipt Date: 20201207
  Transmission Date: 20210114
  Serious: No
  Sender: FDA-Public Use
  Company Number: US-BAYER-2020-261785

PATIENT
  Age: 74 Year
  Sex: Female

DRUGS (1)
  1. CLIMARA [Suspect]
     Active Substance: ESTRADIOL
     Indication: HORMONE REPLACEMENT THERAPY
     Dosage: UNK
     Route: 062
     Dates: start: 2015

REACTIONS (3)
  - Application site rash [Recovered/Resolved with Sequelae]
  - Application site rash [Not Recovered/Not Resolved]
  - Dermatitis infected [Not Recovered/Not Resolved]

NARRATIVE: CASE EVENT DATE: 202010
